FAERS Safety Report 12880152 (Version 1)
Quarter: 2016Q4

REPORT INFORMATION
  Report Type: Spontaneous
  Country: US (occurrence: US)
  Receive Date: 20161021
  Receipt Date: 20161021
  Transmission Date: 20170207
  Serious: No
  Sender: FDA-Public Use
  Company Number: None

PATIENT
  Age: 64 Year
  Sex: Female

DRUGS (1)
  1. ENBREL [Suspect]
     Active Substance: ETANERCEPT
     Indication: PSORIATIC ARTHROPATHY
     Route: 058
     Dates: start: 20160810, end: 20160914

REACTIONS (4)
  - Staphylococcal infection [None]
  - Injection site warmth [None]
  - Injection site erythema [None]
  - Injection site infection [None]

NARRATIVE: CASE EVENT DATE: 20160914
